FAERS Safety Report 9994377 (Version 2)
Quarter: 2014Q2

REPORT INFORMATION
  Report Type: Spontaneous
  Country: IT (occurrence: IT)
  Receive Date: 20140311
  Receipt Date: 20140415
  Transmission Date: 20141212
  Serious: Yes (Other)
  Sender: FDA-Public Use
  Company Number: IT-ROCHE-1362336

PATIENT
  Age: 67 Year
  Sex: Male

DRUGS (1)
  1. ALTEPLASE [Suspect]
     Indication: ISCHAEMIC STROKE
     Route: 042

REACTIONS (5)
  - Aortic dissection [Unknown]
  - Hypertension [Unknown]
  - Neurological decompensation [Unknown]
  - Abdominal pain [Unknown]
  - Hemiparesis [Unknown]
